FAERS Safety Report 12959027 (Version 1)
Quarter: 2016Q4

REPORT INFORMATION
  Report Type: Spontaneous
  Country: US (occurrence: US)
  Receive Date: 20161117
  Receipt Date: 20161117
  Transmission Date: 20170207
  Serious: No
  Sender: FDA-Public Use
  Company Number: None

PATIENT
  Age: 75 Year
  Sex: Female

DRUGS (16)
  1. CLOPIDOGREL [Suspect]
     Active Substance: CLOPIDOGREL BISULFATE
     Indication: ISCHAEMIC CARDIOMYOPATHY
     Route: 048
     Dates: start: 20150701, end: 20160906
  2. DILTIAZEM. [Concomitant]
     Active Substance: DILTIAZEM
  3. METOPROLOL. [Concomitant]
     Active Substance: METOPROLOL
  4. ALBUTEROL. [Concomitant]
     Active Substance: ALBUTEROL
  5. CALCIUM + VITAMIN D [Concomitant]
     Active Substance: CALCIUM\VITAMIN D
  6. FAMOTIDINE. [Concomitant]
     Active Substance: FAMOTIDINE
  7. ROSUVASTATIN. [Concomitant]
     Active Substance: ROSUVASTATIN
  8. TIOTROPIUM [Concomitant]
     Active Substance: TIOTROPIUM
  9. ASPIRIN. [Suspect]
     Active Substance: ASPIRIN
     Route: 048
  10. FLUTICASONE AND SALMETEROL [Concomitant]
     Active Substance: FLUTICASONE PROPIONATE\SALMETEROL XINAFOATE
  11. LEVOTHYROXINE. [Concomitant]
     Active Substance: LEVOTHYROXINE
  12. SENNA [Concomitant]
     Active Substance: SENNA LEAF\SENNOSIDES\SENNOSIDES A AND B
  13. FERROUS SULFATE. [Concomitant]
     Active Substance: FERROUS SULFATE
  14. TRAMADOL. [Concomitant]
     Active Substance: TRAMADOL
  15. ACETAMINOPHEN-CODEINE [Concomitant]
     Active Substance: ACETAMINOPHEN\CODEINE PHOSPHATE
  16. PREDNISONE. [Concomitant]
     Active Substance: PREDNISONE

REACTIONS (2)
  - Haemoglobin decreased [None]
  - Melaena [None]

NARRATIVE: CASE EVENT DATE: 20160906
